FAERS Safety Report 13607870 (Version 3)
Quarter: 2017Q3

REPORT INFORMATION
  Report Type: Spontaneous
  Country: IT (occurrence: IT)
  Receive Date: 20170602
  Receipt Date: 20170712
  Transmission Date: 20171127
  Serious: Yes (Other)
  Sender: FDA-Public Use
  Company Number: IT-BAYER-2017-098861

PATIENT
  Age: 72 Year
  Sex: Male

DRUGS (2)
  1. NEXAVAR [Suspect]
     Active Substance: SORAFENIB
     Indication: HEPATOCELLULAR CARCINOMA
     Dosage: DAILY DOSE 400 MG
     Route: 048
     Dates: start: 201610, end: 20170419
  2. LANSOPRAZOLE. [Concomitant]
     Active Substance: LANSOPRAZOLE
     Indication: GASTRITIS

REACTIONS (5)
  - Drug-induced liver injury [None]
  - Cholangitis [None]
  - Hepatitis cholestatic [None]
  - Transaminases increased [None]
  - Blood bilirubin increased [None]

NARRATIVE: CASE EVENT DATE: 201705
